FAERS Safety Report 8962834 (Version 1)
Quarter: 2012Q4

REPORT INFORMATION
  Report Type: 
  Country: US (occurrence: US)
  Receive Date: 20121214
  Receipt Date: 20121214
  Transmission Date: 20130627
  Serious: Yes (Other)
  Sender: FDA-Public Use
  Company Number: US-ASTELLAS-2012US012096

PATIENT
  Age: 53 Year
  Sex: Female
  Weight: 62 kg

DRUGS (41)
  1. AMBISOME [Suspect]
     Indication: PRODUCT USED FOR UNKNOWN INDICATION
     Dosage: UNK
     Route: 065
     Dates: start: 20100509, end: 20100616
  2. TRASTUZUMAB [Suspect]
     Indication: BREAST CANCER METASTATIC
     Dosage: 8 mg/kg, Loading dose for cycle 1
     Route: 042
     Dates: start: 20100107
  3. TRASTUZUMAB [Suspect]
     Dosage: 360 mg, for subsequent cycles
     Route: 042
     Dates: end: 20100511
  4. TRASTUZUMAB [Suspect]
     Dosage: 360 mg, for subsequent cycles
     Dates: end: 20100603
  5. TRASTUZUMAB [Suspect]
     Dosage: 360 mg, for subsequent cycles
     Route: 042
     Dates: start: 20100607
  6. DOCETAXEL [Concomitant]
     Indication: BREAST CANCER METASTATIC
     Dosage: 75 mg/m2, Q3W
     Route: 042
     Dates: start: 20100107
  7. PROMETHAZINE HYDROCHLORIDE WITH CODEINE [Concomitant]
     Indication: PRODUCT USED FOR UNKNOWN INDICATION
     Dosage: 1 DF, Unknown/D
     Route: 065
     Dates: start: 201004, end: 20100505
  8. VERAMYST [Concomitant]
     Indication: PRODUCT USED FOR UNKNOWN INDICATION
     Dosage: UNK
     Route: 050
     Dates: start: 20100422, end: 20100511
  9. ASTEPRO [Concomitant]
     Indication: PRODUCT USED FOR UNKNOWN INDICATION
     Dosage: 2 DF, bid
     Route: 050
     Dates: start: 20100422, end: 20100511
  10. ASPIRIN [Concomitant]
     Indication: PRODUCT USED FOR UNKNOWN INDICATION
     Dosage: UNK
     Route: 065
     Dates: start: 2001
  11. CLARITIN-D [Concomitant]
     Indication: PRODUCT USED FOR UNKNOWN INDICATION
     Dosage: 1 DF, prn
     Route: 065
     Dates: start: 2009
  12. LIPITOR [Concomitant]
     Indication: PRODUCT USED FOR UNKNOWN INDICATION
     Dosage: UNK
     Route: 065
     Dates: start: 2008
  13. MICRONASE [Concomitant]
     Indication: PRODUCT USED FOR UNKNOWN INDICATION
  14. VITAMINS                           /90003601/ [Concomitant]
     Indication: PRODUCT USED FOR UNKNOWN INDICATION
     Dosage: UNK
     Route: 065
     Dates: start: 19950630
  15. DEXTROSE [Concomitant]
     Indication: PRODUCT USED FOR UNKNOWN INDICATION
     Dosage: 1000 ml, UID/QD
     Route: 065
     Dates: start: 20100505, end: 20100506
  16. TEMAZEPAM [Concomitant]
     Indication: PRODUCT USED FOR UNKNOWN INDICATION
     Dosage: 15 mg, UID/QD
     Route: 065
     Dates: start: 20100508, end: 20100510
  17. SYNTHROID [Concomitant]
     Indication: PRODUCT USED FOR UNKNOWN INDICATION
     Dosage: 125 ug, UID/QD
     Route: 065
     Dates: start: 1984
  18. TORADOL [Concomitant]
     Indication: PRODUCT USED FOR UNKNOWN INDICATION
     Dosage: 60 mg, UID/QD
     Route: 065
     Dates: start: 20100506, end: 20100507
  19. DOCUSATE SODIUM [Concomitant]
     Indication: PRODUCT USED FOR UNKNOWN INDICATION
     Dosage: 100 mg, UID/QD
     Route: 065
     Dates: start: 20100506, end: 20100511
  20. LOVENOX [Concomitant]
     Indication: PRODUCT USED FOR UNKNOWN INDICATION
     Dosage: 40 mg, UID/QD
     Route: 065
     Dates: start: 20100506, end: 20100511
  21. MORPHINE [Concomitant]
     Indication: PRODUCT USED FOR UNKNOWN INDICATION
     Dosage: 4 mg, UID/QD
     Route: 065
     Dates: start: 20100506, end: 20100511
  22. PANTOPRAZOLE SODIUM [Concomitant]
     Indication: PRODUCT USED FOR UNKNOWN INDICATION
     Dosage: 20 mg, UID/QD
     Route: 065
     Dates: start: 20100508, end: 20100511
  23. SIMVASTATIN [Concomitant]
     Indication: PRODUCT USED FOR UNKNOWN INDICATION
     Dosage: 80 mg, UID/QD
     Route: 065
     Dates: start: 20100507, end: 20100511
  24. NORMAL SALINE [Concomitant]
     Indication: PRODUCT USED FOR UNKNOWN INDICATION
     Dosage: 1000 ml, Various
     Route: 065
     Dates: start: 20100509, end: 20100511
  25. NORMAL SALINE [Concomitant]
     Dosage: 1000 ml, Various
     Route: 065
     Dates: start: 20100106
  26. BENADRYL                           /00000402/ [Concomitant]
     Indication: PRODUCT USED FOR UNKNOWN INDICATION
     Dosage: 50 mg, UID/QD
     Route: 065
     Dates: start: 20100409, end: 20100616
  27. TYLENOL /00020001/ [Concomitant]
     Indication: PRODUCT USED FOR UNKNOWN INDICATION
     Dosage: 650 mg, UID/QD
     Route: 065
     Dates: start: 20100509, end: 20100511
  28. POTASSIUM [Concomitant]
     Indication: PRODUCT USED FOR UNKNOWN INDICATION
     Dosage: UNK
     Route: 065
     Dates: start: 20100511, end: 20100511
  29. CODEINE [Concomitant]
     Indication: PRODUCT USED FOR UNKNOWN INDICATION
     Dosage: 5 ml, UID/QD
     Route: 065
     Dates: start: 20100505, end: 20100505
  30. METHYLPREDNISOLONE [Concomitant]
     Indication: PRODUCT USED FOR UNKNOWN INDICATION
     Dosage: 30 mg, UID/QD
     Route: 065
     Dates: start: 20100505, end: 20100508
  31. BUDESONIDE [Concomitant]
     Indication: PRODUCT USED FOR UNKNOWN INDICATION
     Dosage: 0.5 mg, UID/QD
     Route: 065
     Dates: start: 20100506, end: 20100511
  32. LEVALBUTEROL [Concomitant]
     Indication: PRODUCT USED FOR UNKNOWN INDICATION
     Dosage: 0.63 mg, UID/QD
     Route: 065
     Dates: start: 20100506, end: 20100511
  33. HYDROCODONE W/ACETAMINOPHEN [Concomitant]
     Indication: PRODUCT USED FOR UNKNOWN INDICATION
     Dosage: UNK
     Route: 065
     Dates: start: 20100511, end: 20100511
  34. PLAVIX [Concomitant]
     Indication: PRODUCT USED FOR UNKNOWN INDICATION
     Dosage: 75 mg, UID/QD
     Route: 065
     Dates: start: 2001
  35. PREDNISONE [Concomitant]
     Indication: PRODUCT USED FOR UNKNOWN INDICATION
     Dosage: 10 mg, UID/QD
     Dates: start: 20100507, end: 20100511
  36. PROCRIT                            /00909301/ [Concomitant]
     Indication: PRODUCT USED FOR UNKNOWN INDICATION
     Dosage: UNK
     Route: 065
     Dates: start: 20100517, end: 20100714
  37. LORAZEPAM [Concomitant]
     Indication: PRODUCT USED FOR UNKNOWN INDICATION
     Dosage: 1 mg, UID/QD
     Route: 065
     Dates: start: 20100106, end: 20100818
  38. SODIUM CHLORIDE [Concomitant]
     Indication: PRODUCT USED FOR UNKNOWN INDICATION
     Dosage: Various
     Dates: start: 20100106
  39. AREDIA [Concomitant]
     Indication: PRODUCT USED FOR UNKNOWN INDICATION
     Dosage: 90 mg, UID/QD
     Route: 065
     Dates: start: 20100113
  40. DIFLUCAN [Concomitant]
     Indication: PRODUCT USED FOR UNKNOWN INDICATION
     Dosage: UNK
     Route: 065
  41. PROMETHAZINE [Concomitant]
     Indication: PRODUCT USED FOR UNKNOWN INDICATION
     Dosage: 5 ml, UID/QD
     Route: 065
     Dates: start: 20100505, end: 20100505

REACTIONS (2)
  - Blood creatine phosphokinase increased [Unknown]
  - Chest pain [Recovered/Resolved]
